FAERS Safety Report 8765754 (Version 8)
Quarter: 2012Q4

REPORT INFORMATION
  Report Type: 
  Country: US (occurrence: US)
  Receive Date: 20120904
  Receipt Date: 20121226
  Transmission Date: 20130627
  Serious: Yes (Hospitalization, Other)
  Sender: FDA-Public Use
  Company Number: US-PFIZER INC-2012213794

PATIENT
  Age: 67 Year
  Sex: Female
  Weight: 52.61 kg

DRUGS (13)
  1. SUTENT [Suspect]
     Indication: METASTATIC RENAL CELL CARCINOMA
     Dosage: 50 mg, cyclic
     Route: 048
     Dates: start: 201207
  2. SUTENT [Suspect]
     Dosage: 50 mg, daily, cyclic
     Route: 048
     Dates: start: 20120822, end: 20120911
  3. SUTENT [Suspect]
     Dosage: 37.5 mg, daily, cyclic
     Route: 048
     Dates: start: 20121007
  4. SUTENT [Suspect]
     Dosage: 37.5 mg daily, cyclic
     Route: 048
     Dates: start: 2012
  5. SUTENT [Suspect]
     Dosage: UNK
     Route: 048
  6. SUTENT [Suspect]
     Dosage: 37.5 mg, cyclic
     Dates: end: 20121212
  7. LISINOPRIL [Concomitant]
     Indication: BLOOD PRESSURE HIGH
     Dosage: 5 mg, UNK
  8. ATORVASTATIN [Concomitant]
     Indication: CHOLESTEROL HIGH
     Dosage: 10 mg, UNK
  9. LIPITOR [Concomitant]
     Indication: BLOOD CHOLESTEROL ABNORMAL
     Dosage: 10 mg, daily
     Route: 048
  10. ATORVASTATIN CALCIUM [Concomitant]
     Indication: BLOOD CHOLESTEROL ABNORMAL
     Dosage: 10 mg, daily
  11. PRAVASTATIN [Concomitant]
     Indication: BLOOD PRESSURE HIGH
     Dosage: 5 mg, daily
  12. METOPROLOL [Concomitant]
     Dosage: UNK
  13. CO-Q-10 [Concomitant]
     Dosage: UNK

REACTIONS (43)
  - Fall [Unknown]
  - Thyroid disorder [Unknown]
  - Asthenia [Recovering/Resolving]
  - Pleural effusion [Unknown]
  - Gallbladder enlargement [Unknown]
  - Biliary tract disorder [Unknown]
  - Cardiac enzymes increased [Unknown]
  - Liver function test abnormal [Unknown]
  - Platelet count decreased [Unknown]
  - White blood cell count decreased [Unknown]
  - Yellow skin [Unknown]
  - Dehydration [Unknown]
  - Aphagia [Recovering/Resolving]
  - Circulatory collapse [Recovering/Resolving]
  - Paraesthesia [Recovering/Resolving]
  - Diarrhoea [Recovering/Resolving]
  - Dysstasia [Recovering/Resolving]
  - Hypokinesia [Recovering/Resolving]
  - Gait disturbance [Recovering/Resolving]
  - Decreased appetite [Recovering/Resolving]
  - Dysgeusia [Recovering/Resolving]
  - Depression [Recovering/Resolving]
  - Cough [Recovering/Resolving]
  - Oral pain [Recovering/Resolving]
  - Fatigue [Recovering/Resolving]
  - Skin fissures [Recovering/Resolving]
  - Dry skin [Recovering/Resolving]
  - Insomnia [Recovering/Resolving]
  - Weight decreased [Recovering/Resolving]
  - Malaise [Recovering/Resolving]
  - Palmar-plantar erythrodysaesthesia syndrome [Unknown]
  - Bowel movement irregularity [Not Recovered/Not Resolved]
  - Constipation [Unknown]
  - Disease progression [Unknown]
  - Metastatic renal cell carcinoma [Unknown]
  - Epistaxis [Unknown]
  - Diarrhoea [Unknown]
  - Vomiting [Unknown]
  - Eye swelling [Unknown]
  - Flatulence [Unknown]
  - Nasopharyngitis [Unknown]
  - Emotional disorder [Unknown]
  - Anxiety [Unknown]
